FAERS Safety Report 6175696-7 (Version None)
Quarter: 2009Q2

REPORT INFORMATION
  Report Type: 
  Country: None (occurrence: None)
  Receive Date: 20090427
  Receipt Date: 20080604
  Transmission Date: 20091009
  Serious: Yes (Other)
  Sender: FDA-Public Use
  Company Number: TEST00208002460

PATIENT
  Age: 83 Year
  Sex: Male
  Weight: 73.5 kg

DRUGS (7)
  1. ANDROGEL [Suspect]
     Indication: BLOOD TESTOSTERONE DECREASED
     Dosage: 5 GRAM(S) QD TRANSCUTANEOUS DAILY DOSE: 5 GRAM(S) , VIA  PUMP
     Route: 062
     Dates: start: 20071101, end: 20080604
  2. ZOCOR [Concomitant]
  3. NIASPAN [Concomitant]
  4. BENICAR [Concomitant]
  5. SYNTHROID [Concomitant]
  6. TRICOR [Concomitant]
  7. ALLOPURINOL [Concomitant]

REACTIONS (4)
  - DRY EYE [None]
  - DRY MOUTH [None]
  - NASAL DRYNESS [None]
  - THROMBOSIS [None]
